FAERS Safety Report 24598872 (Version 3)
Quarter: 2025Q1

REPORT INFORMATION
  Report Type: Spontaneous
  Country: US (occurrence: US)
  Receive Date: 20241110
  Receipt Date: 20250307
  Transmission Date: 20250409
  Serious: No
  Sender: SANOFI AVENTIS
  Company Number: US-SA-2024SA316336

PATIENT
  Age: 27 Year
  Sex: Female

DRUGS (14)
  1. DUPIXENT [Suspect]
     Active Substance: DUPILUMAB
     Indication: Dermatitis atopic
     Dosage: 300 MG, QOW
     Route: 058
     Dates: start: 20200211
  2. ACYCLOVIR [Concomitant]
     Active Substance: ACYCLOVIR
  3. CLONIDINE [Concomitant]
     Active Substance: CLONIDINE
  4. HYDROCORTISONE [Concomitant]
     Active Substance: HYDROCORTISONE
  5. MEDROXYPROGESTERONE ACETATE [Concomitant]
     Active Substance: MEDROXYPROGESTERONE ACETATE
  6. MELOXICAM [Concomitant]
     Active Substance: MELOXICAM
  7. MUPIROCIN [Concomitant]
     Active Substance: MUPIROCIN
  8. ONDANSETRON [Concomitant]
     Active Substance: ONDANSETRON
  9. OSELTAMIVIR [Concomitant]
     Active Substance: OSELTAMIVIR
  10. PREDNISONE [Concomitant]
     Active Substance: PREDNISONE
  11. SERTRALINE [Concomitant]
     Active Substance: SERTRALINE HYDROCHLORIDE
  12. TRETINOIN [Concomitant]
     Active Substance: TRETINOIN
  13. TRETINOIN [Concomitant]
     Active Substance: TRETINOIN
  14. TRIAMCINOLONE [Concomitant]
     Active Substance: TRIAMCINOLONE

REACTIONS (5)
  - Sleep disorder due to a general medical condition [Not Recovered/Not Resolved]
  - Dry skin [Not Recovered/Not Resolved]
  - Skin irritation [Not Recovered/Not Resolved]
  - Pruritus [Not Recovered/Not Resolved]
  - Maternal exposure during pregnancy [Unknown]

NARRATIVE: CASE EVENT DATE: 20240101
